FAERS Safety Report 7321899-5 (Version None)
Quarter: 2011Q1

REPORT INFORMATION
  Report Type: 
  Country: None (occurrence: None)
  Receive Date: 20110228
  Receipt Date: 20110218
  Transmission Date: 20110831
  Serious: Yes (Hospitalization)
  Sender: FDA-Public Use
  Company Number: LT-ROCHE-716335

PATIENT
  Sex: Female
  Weight: 53 kg

DRUGS (16)
  1. ACIDUM FOLICUM [Concomitant]
     Dates: start: 20090115
  2. CYANOCOBALAMINUM [Concomitant]
     Dates: start: 20090105
  3. METHOXY POLYETHYLENE GLYCOL-EPOETIN BETA [Suspect]
     Dosage: FORM: PFC, LAST DOSE PRIOR TO SAE: 30 DECEMBER 2009
     Route: 058
     Dates: start: 20091230
  4. TRIMETHOPRIM [Concomitant]
     Dates: start: 20100310, end: 20100422
  5. METHOXY POLYETHYLENE GLYCOL-EPOETIN BETA [Suspect]
     Dosage: LAST DOSE PRIOR TO SAE: 30 JUNE 2010, FORM: PFC
     Route: 058
     Dates: start: 20100331
  6. OFLOXACINUM [Concomitant]
     Dates: start: 20100423, end: 20100520
  7. CALCIGRAN [Concomitant]
     Dosage: DRUG REPORTED: CALCIGRANUM
     Dates: start: 20090115
  8. AMOXICILLINUM [Concomitant]
     Dosage: TOTAL DAILY DOSE: 0.5-1.0 G
     Dates: start: 20091109, end: 20100115
  9. TRIMETHOPRIM [Concomitant]
     Dosage: DRUG REPORTED AS: TRIMETOPRIMUM
     Dates: start: 20100125, end: 20100211
  10. METHOXY POLYETHYLENE GLYCOL-EPOETIN BETA [Suspect]
     Dosage: FORM: PFC; LAST DOSE PRIOR TO SAE: 30 NOVEMBER 2009
     Route: 058
     Dates: start: 20091130
  11. METHOXY POLYETHYLENE GLYCOL-EPOETIN BETA [Suspect]
     Dosage: FORM: PFC
     Route: 058
     Dates: start: 20100302
  12. THIAMINE HCL [Concomitant]
     Dosage: DRUG REPORTED AS: THIAMINUM, FREQUENCY: QS
     Dates: start: 20081222
  13. PYRIDOXINUM [Concomitant]
     Dosage: FREQUENCY: QS
     Dates: start: 20081222
  14. AMOXICILLINUM [Concomitant]
     Dates: start: 20100212, end: 20100309
  15. AMOXICILLINUM [Concomitant]
     Dates: start: 20100521, end: 20100618
  16. AMOXICILLINUM [Concomitant]
     Dates: start: 20100707, end: 20101224

REACTIONS (1)
  - HAEMOLYSIS [None]
